FAERS Safety Report 12596397 (Version 2)
Quarter: 2016Q3

REPORT INFORMATION
  Report Type: Spontaneous
  Country: BR (occurrence: BR)
  Receive Date: 20160727
  Receipt Date: 20160814
  Transmission Date: 20161109
  Serious: Yes (Other)
  Sender: FDA-Public Use
  Company Number: BR-ROCHE-1756591

PATIENT
  Age: 45 Year
  Sex: Female
  Weight: 73.4 kg

DRUGS (3)
  1. AVASTIN [Suspect]
     Active Substance: BEVACIZUMAB
     Dosage: FORM STRENGTHS: 100 MG, 400 MG
     Route: 042
     Dates: start: 20160604
  2. AVASTIN [Suspect]
     Active Substance: BEVACIZUMAB
     Indication: BREAST CANCER
     Dosage: FORM STRENGTHS: 100 MG, 400 MG
     Route: 042
     Dates: start: 20160423
  3. AVASTIN [Suspect]
     Active Substance: BEVACIZUMAB
     Dosage: FORM STRENGTHS: 100 MG, 400 MG
     Route: 042
     Dates: start: 20160521

REACTIONS (4)
  - Dyspnoea [Unknown]
  - Malaise [Recovered/Resolved]
  - Erythema [Recovered/Resolved]
  - Infusion related reaction [Unknown]

NARRATIVE: CASE EVENT DATE: 20160423
